FAERS Safety Report 6383509-3 (Version None)
Quarter: 2009Q4

REPORT INFORMATION
  Report Type: 
  Country: None (occurrence: None)
  Receive Date: 20091001
  Receipt Date: 20090923
  Transmission Date: 20100525
  Serious: Yes (Hospitalization)
  Sender: FDA-Public Use
  Company Number: JP-ROCHE-652181

PATIENT
  Sex: Female
  Weight: 59 kg

DRUGS (22)
  1. CAPECITABINE [Suspect]
     Indication: BREAST CANCER
     Route: 048
     Dates: start: 20090402, end: 20090415
  2. CAPECITABINE [Suspect]
     Route: 048
     Dates: start: 20090430, end: 20090506
  3. CAPECITABINE [Suspect]
     Route: 048
     Dates: start: 20090514, end: 20090527
  4. CAPECITABINE [Suspect]
     Route: 048
     Dates: start: 20090604, end: 20090610
  5. CAPECITABINE [Suspect]
     Route: 048
     Dates: start: 20090611, end: 20090617
  6. CAPECITABINE [Suspect]
     Route: 048
     Dates: start: 20090625, end: 20090708
  7. CAPECITABINE [Suspect]
     Route: 048
     Dates: start: 20090718, end: 20090729
  8. CAPECITABINE [Suspect]
     Route: 048
     Dates: start: 20090806
  9. SUNITINIB MALATE [Suspect]
     Indication: BREAST CANCER
     Route: 048
     Dates: start: 20090402, end: 20090422
  10. SUNITINIB MALATE [Suspect]
     Route: 048
     Dates: start: 20090423, end: 20090617
  11. SUNITINIB MALATE [Suspect]
     Route: 048
     Dates: start: 20090618, end: 20090716
  12. SUNITINIB MALATE [Suspect]
     Route: 048
     Dates: start: 20090718, end: 20090805
  13. SUNITINIB MALATE [Suspect]
     Route: 048
     Dates: start: 20090806, end: 20090806
  14. SUNITINIB MALATE [Suspect]
     Route: 048
  15. LACTOMIN [Concomitant]
  16. CANDESARTAN CILEXETIL [Concomitant]
     Indication: HYPERTENSION
     Dates: start: 20090522
  17. UREA [Concomitant]
     Indication: PROPHYLAXIS
     Dates: start: 20090402
  18. NIFEDIPINE [Concomitant]
     Indication: HYPERTENSION
     Dates: start: 20090522
  19. PYRIDOXAL PHOSPHATE [Concomitant]
     Dates: start: 20090718
  20. ACETAMINOPHEN [Concomitant]
     Indication: HEADACHE
     Dates: start: 20090718
  21. OFLOXACIN [Concomitant]
     Indication: CONJUNCTIVITIS
     Dates: start: 20090718
  22. DIFLUPREDNATE [Concomitant]
     Dates: start: 20090702

REACTIONS (2)
  - HYPOPROTEINAEMIA [None]
  - MALAISE [None]
